FAERS Safety Report 24286608 (Version 1)
Quarter: 2024Q3

REPORT INFORMATION
  Report Type: Spontaneous
  Country: CZ (occurrence: CZ)
  Receive Date: 20240905
  Receipt Date: 20240905
  Transmission Date: 20241017
  Serious: Yes (Life-Threatening, Other)
  Sender: B BRAUN
  Company Number: CZ-B.Braun Medical Inc.-2161236

PATIENT
  Age: 69 Year
  Sex: Female
  Weight: 115 kg

DRUGS (16)
  1. ACETAMINOPHEN [Suspect]
     Active Substance: ACETAMINOPHEN
     Indication: Pain
     Route: 042
     Dates: start: 20240408, end: 20240410
  2. ZALDIAR [Suspect]
     Active Substance: ACETAMINOPHEN\TRAMADOL HYDROCHLORIDE
  3. TRAMADOL [Concomitant]
     Active Substance: TRAMADOL\TRAMADOL HYDROCHLORIDE
  4. Nutrison HFE [Concomitant]
  5. MIRTAZAPINE [Concomitant]
     Active Substance: MIRTAZAPINE
  6. LAMICTAL [Concomitant]
     Active Substance: LAMOTRIGINE
  7. MORPHINE [Concomitant]
     Active Substance: MORPHINE
  8. FENTANYL [Concomitant]
     Active Substance: FENTANYL\FENTANYL CITRATE
  9. OXAZEPAM [Concomitant]
     Active Substance: OXAZEPAM
  10. ELECTROLYTES NOS [Concomitant]
     Active Substance: ELECTROLYTES NOS
  11. PANTOPRAZOLE SODIUM [Concomitant]
     Active Substance: PANTOPRAZOLE SODIUM
  12. ENOXAPARIN SODIUM [Concomitant]
     Active Substance: ENOXAPARIN SODIUM
  13. NEBIVOLOL [Concomitant]
     Active Substance: NEBIVOLOL
  14. ARCHIFAR [Concomitant]
  15. PREGABALIN [Concomitant]
     Active Substance: PREGABALIN
  16. UNSPECIFIED INGREDIENT [Suspect]
     Active Substance: UNSPECIFIED INGREDIENT

REACTIONS (1)
  - Metabolic acidosis [Recovering/Resolving]
